FAERS Safety Report 7204045-8 (Version None)
Quarter: 2010Q4

REPORT INFORMATION
  Report Type: 
  Country: None (occurrence: None)
  Receive Date: 20101220
  Receipt Date: 20101214
  Transmission Date: 20110411
  Serious: Yes (Other)
  Sender: FDA-Public Use
  Company Number: JP-1184248

PATIENT
  Age: 75 Year
  Sex: Female

DRUGS (8)
  1. TRAVATAN Z [Suspect]
     Indication: NORMAL TENSION GLAUCOMA
     Dosage: 1 GTT QD OU
     Route: 047
     Dates: start: 20101101, end: 20101104
  2. ADALAT 1 (NIFEDIPINE) [Concomitant]
  3. DILTIAZEM HYDROCHLORIDE [Concomitant]
  4. ASPARA-CA (ASPARTATE CALCIUM) [Concomitant]
  5. FAMOTIDINE [Concomitant]
  6. ROCORNAL (TRAPIDIL) [Concomitant]
  7. SELBEX (TEPRENONE) [Concomitant]
  8. LIVALO [Concomitant]

REACTIONS (4)
  - ARRHYTHMIA [None]
  - EYE PAIN [None]
  - MALAISE [None]
  - OCULAR HYPERAEMIA [None]
